FAERS Safety Report 6709234-4 (Version None)
Quarter: 2010Q2

REPORT INFORMATION
  Report Type: 
  Country: None (occurrence: None)
  Receive Date: 20100503
  Receipt Date: 20100503
  Transmission Date: 20101027
  Serious: Yes (Other)
  Sender: FDA-Public Use
  Company Number: None

PATIENT
  Sex: Female
  Weight: 62.5964 kg

DRUGS (2)
  1. AMBIEN [Suspect]
     Dosage: 1 PILL, 2 NITES IN A ROW ONLY
  2. ZOLPIDEM TARTRATE [Concomitant]

REACTIONS (2)
  - FEELING HOT [None]
  - HALLUCINATION [None]
